FAERS Safety Report 9372195 (Version 1)
Quarter: 2013Q2

REPORT INFORMATION
  Report Type: Report from Study
  Country: US (occurrence: US)
  Receive Date: 20130627
  Receipt Date: 20130627
  Transmission Date: 20140414
  Serious: Yes (Death)
  Sender: FDA-Public Use
  Company Number: US-MYLANLABS-2012S1016813

PATIENT
  Age: 44 Year
  Sex: Male
  Weight: 99.79 kg

DRUGS (4)
  1. CLOZAPINE TABLETS [Suspect]
     Indication: SCHIZOAFFECTIVE DISORDER
     Route: 048
     Dates: start: 19980423
  2. ATENOLOL [Concomitant]
  3. PAXIL [Concomitant]
  4. ZYPREXA [Concomitant]

REACTIONS (1)
  - Myocardial infarction [Fatal]
